FAERS Safety Report 19264682 (Version 1)
Quarter: 2021Q2

REPORT INFORMATION
  Report Type: Spontaneous
  Country: US (occurrence: US)
  Receive Date: 20210517
  Receipt Date: 20210517
  Transmission Date: 20210717
  Serious: No
  Sender: FDA-Public Use
  Company Number: None

PATIENT
  Age: 64 Year
  Sex: Female

DRUGS (4)
  1. SUTENT [Suspect]
     Active Substance: SUNITINIB MALATE
     Indication: NEOPLASM
     Route: 048
     Dates: start: 20210420, end: 20210420
  2. LISINOPRIL 10 MG [Concomitant]
     Active Substance: LISINOPRIL
     Dates: start: 20201106
  3. ESCITALOPRAM [Concomitant]
     Active Substance: ESCITALOPRAM OXALATE
     Dates: start: 20210308
  4. ONDANSETRON 4MG [Concomitant]
     Active Substance: ONDANSETRON
     Dates: start: 20201216

REACTIONS (2)
  - Skin necrosis [None]
  - Rash [None]

NARRATIVE: CASE EVENT DATE: 20210420
